FAERS Safety Report 4871766-1 (Version None)
Quarter: 2006Q1

REPORT INFORMATION
  Report Type: 
  Country: None (occurrence: None)
  Receive Date: 20060104
  Receipt Date: 20051109
  Transmission Date: 20060701
  Serious: No
  Sender: FDA-Public Use
  Company Number: US-BRISTOL-MYERS SQUIBB COMPANY-13174347

PATIENT
  Age: 54 Year
  Sex: Male
  Weight: 77 kg

DRUGS (6)
  1. DESYREL [Suspect]
     Indication: INITIAL INSOMNIA
     Dosage: DURATION: ^SEVERAL MONTHS^
     Route: 048
  2. WELLBUTRIN [Concomitant]
  3. XANAX [Concomitant]
  4. PAXIL [Concomitant]
  5. SEROQUEL [Concomitant]
  6. ZYPREXA [Concomitant]

REACTIONS (1)
  - SEDATION [None]
